FAERS Safety Report 26028387 (Version 1)
Quarter: 2025Q4

REPORT INFORMATION
  Report Type: Spontaneous
  Country: US (occurrence: US)
  Receive Date: 20251111
  Receipt Date: 20251111
  Transmission Date: 20260118
  Serious: Yes (Hospitalization, Congenital Anomaly, Other)
  Sender: VERTEX
  Company Number: US-VERTEX PHARMACEUTICALS-2025-005108

PATIENT
  Age: 0 Year
  Sex: Male
  Weight: 7 kg

DRUGS (1)
  1. TRIKAFTA [Suspect]
     Active Substance: ELEXACAFTOR\IVACAFTOR\TEZACAFTOR
     Indication: Cystic fibrosis
     Dosage: 2 ORANGE TABLETS IN THE MORNING AND 1 BLUE TABLET IN THE EVENING
     Route: 064
     Dates: start: 20240904

REACTIONS (6)
  - Microcolon [Unknown]
  - Weight decreased [Recovering/Resolving]
  - Blood bilirubin increased [Recovered/Resolved]
  - Intestinal atresia [Recovered/Resolved]
  - Exposure via breast milk [Unknown]
  - Pancreatic enzymes decreased [Recovering/Resolving]

NARRATIVE: CASE EVENT DATE: 20241111
